FAERS Safety Report 14126023 (Version 1)
Quarter: 2017Q4

REPORT INFORMATION
  Report Type: Spontaneous
  Country: US (occurrence: US)
  Receive Date: 20171025
  Receipt Date: 20171025
  Transmission Date: 20180321
  Serious: No
  Sender: FDA-Public Use
  Company Number: US-PERRIGO-17US023446

PATIENT
  Age: 25 Year
  Sex: Male
  Weight: 126.98 kg

DRUGS (1)
  1. NICOTINE POLACRILEX [Suspect]
     Active Substance: NICOTINE
     Indication: SMOKING CESSATION THERAPY
     Dosage: 4 MG, 12 TIMES A DAY
     Route: 002
     Dates: start: 20170421, end: 20170503

REACTIONS (1)
  - Drug ineffective [Unknown]

NARRATIVE: CASE EVENT DATE: 20170421
